FAERS Safety Report 16030522 (Version 1)
Quarter: 2019Q1

REPORT INFORMATION
  Report Type: Report from Study
  Country: US (occurrence: US)
  Receive Date: 20190304
  Receipt Date: 20190304
  Transmission Date: 20190418
  Serious: Yes (Other)
  Sender: FDA-Public Use
  Company Number: US-CASPER PHARMA LLC-2019CAS000073

PATIENT

DRUGS (1)
  1. NEOMYCIN, POLYMYXIN, BACITRACIN, HC [Suspect]
     Active Substance: BACITRACIN ZINC\HYDROCORTISONE\NEOMYCIN SULFATE\POLYMYXIN B SULFATE
     Indication: HYPOTENSION
     Dosage: UNK
     Route: 065

REACTIONS (2)
  - Necrotising colitis [Unknown]
  - Product use in unapproved indication [Unknown]
